FAERS Safety Report 6840358-7 (Version None)
Quarter: 2010Q3

REPORT INFORMATION
  Report Type: 
  Country: None (occurrence: None)
  Receive Date: 20100713
  Receipt Date: 20100713
  Transmission Date: 20110219
  Serious: Yes (Life-Threatening, Other)
  Sender: FDA-Public Use
  Company Number: None

PATIENT
  Age: 25 Year
  Sex: Male
  Weight: 74.8435 kg

DRUGS (2)
  1. CYMBALTA [Suspect]
     Indication: ANXIETY
     Dosage: 60 MGS 1 X A DAY PO
     Route: 048
     Dates: start: 20100524, end: 20100701
  2. CYMBALTA [Suspect]
     Indication: DEPRESSION
     Dosage: 60 MGS 1 X A DAY PO
     Route: 048
     Dates: start: 20100524, end: 20100701

REACTIONS (22)
  - AMNESIA [None]
  - ANXIETY [None]
  - CONFUSIONAL STATE [None]
  - CONSTIPATION [None]
  - DECREASED APPETITE [None]
  - DIARRHOEA [None]
  - DIZZINESS [None]
  - DRY MOUTH [None]
  - DRY SKIN [None]
  - FATIGUE [None]
  - HEADACHE [None]
  - INSOMNIA [None]
  - IRRITABILITY [None]
  - NAUSEA [None]
  - NIGHT SWEATS [None]
  - NIGHTMARE [None]
  - PARAESTHESIA [None]
  - RECTAL HAEMORRHAGE [None]
  - RESTLESSNESS [None]
  - TREMOR [None]
  - VERTIGO [None]
  - VISUAL IMPAIRMENT [None]
